FAERS Safety Report 6896189-5 (Version None)
Quarter: 2010Q3

REPORT INFORMATION
  Report Type: 
  Country: None (occurrence: None)
  Receive Date: 20100802
  Receipt Date: 20100722
  Transmission Date: 20110219
  Serious: Yes (Hospitalization)
  Sender: FDA-Public Use
  Company Number: A0867532A

PATIENT
  Age: 60 Year
  Sex: Female
  Weight: 121 kg

DRUGS (6)
  1. AVANDIA [Suspect]
     Dosage: 4MG PER DAY
     Route: 048
     Dates: start: 19990101, end: 20090327
  2. AVANDAMET [Suspect]
     Route: 048
  3. COZAAR [Concomitant]
  4. LOPRESSOR [Concomitant]
  5. PREMARIN [Concomitant]
  6. METFORMIN HCL [Concomitant]

REACTIONS (2)
  - CARDIAC FAILURE CONGESTIVE [None]
  - CARDIOMYOPATHY [None]
